FAERS Safety Report 12541125 (Version 2)
Quarter: 2017Q2

REPORT INFORMATION
  Report Type: Spontaneous
  Country: RO (occurrence: RO)
  Receive Date: 20160708
  Receipt Date: 20170407
  Transmission Date: 20170830
  Serious: Yes (Death)
  Sender: FDA-Public Use
  Company Number: RO-JNJFOC-20160626078

PATIENT
  Age: 60 Year
  Sex: Female

DRUGS (1)
  1. IMBRUVICA [Suspect]
     Active Substance: IBRUTINIB
     Indication: MANTLE CELL LYMPHOMA
     Route: 048
     Dates: start: 20160413, end: 20160606

REACTIONS (4)
  - Malignant neoplasm progression [Fatal]
  - Arrhythmia [Fatal]
  - Cardiac failure acute [Fatal]
  - Hypoalbuminaemia [Unknown]

NARRATIVE: CASE EVENT DATE: 201605
